FAERS Safety Report 5706460-8 (Version None)
Quarter: 2008Q2

REPORT INFORMATION
  Report Type: 
  Country: None (occurrence: None)
  Receive Date: 20080414
  Receipt Date: 20080408
  Transmission Date: 20081010
  Serious: Yes (Other)
  Sender: FDA-Public Use
  Company Number: OSCN-PR-0804S-0197

PATIENT
  Sex: Female

DRUGS (1)
  1. OMNISCAN [Suspect]
     Indication: RENAL TRANSPLANT
     Dosage: SINGLE DOSE, I.V.
     Route: 042
     Dates: start: 20051217, end: 20051217

REACTIONS (1)
  - NEPHROGENIC SYSTEMIC FIBROSIS [None]
